FAERS Safety Report 4345061-3 (Version None)
Quarter: 2004Q1

REPORT INFORMATION
  Report Type: 
  Country: None (occurrence: None)
  Receive Date: 20040325
  Receipt Date: 20040115
  Transmission Date: 20041129
  Serious: No
  Sender: FDA-Public Use
  Company Number: USA040156700

PATIENT
  Age: 71 Year
  Sex: Female

DRUGS (2)
  1. FORTEO [Suspect]
     Dates: start: 20030101
  2. OXYGEN [Concomitant]

REACTIONS (3)
  - DIZZINESS [None]
  - MUSCLE CRAMP [None]
  - URINE ANALYSIS ABNORMAL [None]
